FAERS Safety Report 6493025-6 (Version None)
Quarter: 2009Q4

REPORT INFORMATION
  Report Type: 
  Country: None (occurrence: None)
  Receive Date: 20091214
  Receipt Date: 20091204
  Transmission Date: 20100525
  Serious: Yes (Other)
  Sender: FDA-Public Use
  Company Number: GXKR2009GB13147

PATIENT
  Age: 1 Year
  Sex: Male

DRUGS (3)
  1. DICLOFENAC (NGX) [Suspect]
     Indication: PAIN
     Dosage: 1 DF, ONCE/SINGLE
     Route: 065
  2. FENTANYL [Concomitant]
     Route: 065
  3. PROPOFOL [Concomitant]
     Route: 065

REACTIONS (3)
  - BRADYCARDIA [None]
  - CARDIAC MASSAGE [None]
  - LARYNGOSPASM [None]
